FAERS Safety Report 6580402-8 (Version None)
Quarter: 2010Q1

REPORT INFORMATION
  Report Type: 
  Country: None (occurrence: None)
  Receive Date: 20100212
  Receipt Date: 20100202
  Transmission Date: 20100710
  Serious: Yes (Hospitalization)
  Sender: FDA-Public Use
  Company Number: PHHY2010FR06449

PATIENT
  Sex: Female

DRUGS (6)
  1. VOLTAREN [Suspect]
     Indication: OSTEOARTHRITIS
     Dosage: 100 MG ONCE DAILY
     Route: 048
     Dates: start: 20091210, end: 20091220
  2. NEO-MERCAZOLE TAB [Suspect]
     Indication: BASEDOW'S DISEASE
     Dosage: 40 MG DAILY
     Route: 048
     Dates: start: 19981101, end: 20000501
  3. NEO-MERCAZOLE TAB [Suspect]
     Dosage: 20 MG DAILY
     Route: 048
     Dates: start: 20091120, end: 20091221
  4. NEO-MERCAZOLE TAB [Suspect]
     Dosage: UNK
     Route: 048
     Dates: start: 20091222, end: 20091223
  5. AVLOCARDYL [Suspect]
     Dosage: UNK
     Route: 048
     Dates: start: 20091120, end: 20091130
  6. CHONDROSULF [Suspect]
     Indication: OSTEOARTHRITIS
     Dosage: 400 MG, BID
     Route: 048
     Dates: start: 20091210, end: 20091224

REACTIONS (7)
  - AGRANULOCYTOSIS [None]
  - BASEDOW'S DISEASE [None]
  - EAR PAIN [None]
  - LYMPHADENOPATHY [None]
  - NEUTROPENIA [None]
  - ODYNOPHAGIA [None]
  - TONSILLITIS [None]
